FAERS Safety Report 21135042 (Version 1)
Quarter: 2022Q3

REPORT INFORMATION
  Report Type: Spontaneous
  Country: CH (occurrence: CH)
  Receive Date: 20220727
  Receipt Date: 20220727
  Transmission Date: 20221026
  Serious: Yes (Other)
  Sender: FDA-Public Use
  Company Number: CH-SUN PHARMACEUTICAL INDUSTRIES LTD-2022R1-345763

PATIENT
  Age: 78 Year
  Sex: Female

DRUGS (11)
  1. METHOTREXATE [Suspect]
     Active Substance: METHOTREXATE
     Indication: Rheumatoid arthritis
     Dosage: 7.5 MILLIGRAM, WEEKLY
     Route: 065
     Dates: start: 20210118
  2. METHOTREXATE [Suspect]
     Active Substance: METHOTREXATE
     Dosage: 7.5 MILLIGRAM, WEEKLY
     Route: 065
     Dates: start: 20210215
  3. ADALIMUMAB [Suspect]
     Active Substance: ADALIMUMAB
     Indication: Rheumatoid arthritis
     Dosage: 40 MILLIGRAM (ONE INJECTION PER MONTH)
     Route: 065
     Dates: start: 20210114
  4. ADALIMUMAB [Suspect]
     Active Substance: ADALIMUMAB
     Dosage: 40 MILLIGRAM (ONE INJECTION PER MONTH)
     Route: 065
     Dates: start: 20210214
  5. CALCIUM [Concomitant]
     Active Substance: CALCIUM
     Indication: Rheumatoid arthritis
     Dosage: 500 MILLIGRAM (ONE TABLET PER DAY)
     Route: 065
  6. CHOLECALCIFEROL [Concomitant]
     Active Substance: CHOLECALCIFEROL
     Indication: Rheumatoid arthritis
     Dosage: 400 IU (ONE TABLET PER DAY)
     Route: 065
  7. CHOLECALCIFEROL [Concomitant]
     Active Substance: CHOLECALCIFEROL
     Indication: Rheumatoid arthritis
     Dosage: 100,000 IU (ONE AMPOULE PER MONTH)
     Route: 065
  8. FOLIC ACID [Concomitant]
     Active Substance: FOLIC ACID
     Indication: Rheumatoid arthritis
     Dosage: 5 MILLIGRAM, WEEKLY
     Route: 065
  9. LANSOPRAZOLE [Concomitant]
     Active Substance: LANSOPRAZOLE
     Indication: Rheumatoid arthritis
     Dosage: 30 MILLIGRAM (ONE TABLET PER DAY)
     Route: 065
  10. mRNA-1273 vaccine [Concomitant]
     Indication: COVID-19
     Dosage: FIRST INJECTION
     Route: 065
     Dates: start: 20210118
  11. mRNA-1273 vaccine [Concomitant]
     Dosage: SECOND INJECTION
     Route: 065
     Dates: start: 20210215

REACTIONS (1)
  - Decreased immune responsiveness [Unknown]

NARRATIVE: CASE EVENT DATE: 20210225
